FAERS Safety Report 24366040 (Version 1)
Quarter: 2024Q3

REPORT INFORMATION
  Report Type: Spontaneous
  Country: US (occurrence: US)
  Receive Date: 20240926
  Receipt Date: 20240926
  Transmission Date: 20241017
  Serious: No
  Sender: PFIZER
  Company Number: US-PFIZER INC-202400261452

PATIENT
  Sex: Male

DRUGS (1)
  1. ABROCITINIB [Suspect]
     Active Substance: ABROCITINIB
     Indication: Granuloma
     Dosage: 200 MG, DAILY

REACTIONS (5)
  - Herpes simplex [Unknown]
  - Acne [Unknown]
  - Abdominal discomfort [Unknown]
  - Off label use [Unknown]
  - Drug effective for unapproved indication [Unknown]
